FAERS Safety Report 25175665 (Version 2)
Quarter: 2025Q2

REPORT INFORMATION
  Report Type: Spontaneous
  Country: US (occurrence: US)
  Receive Date: 20250408
  Receipt Date: 20250616
  Transmission Date: 20250716
  Serious: Yes (Death, Hospitalization, Other)
  Sender: JOHNSON AND JOHNSON
  Company Number: US-JNJFOC-20250387980

PATIENT
  Age: 78 Year
  Sex: Male

DRUGS (1)
  1. ZYTIGA [Suspect]
     Active Substance: ABIRATERONE ACETATE
     Indication: Prostate cancer metastatic
     Route: 048
     Dates: end: 20250323

REACTIONS (5)
  - Cerebral haemorrhage [Fatal]
  - Fall [Fatal]
  - Seizure [Unknown]
  - Prostate cancer metastatic [Unknown]
  - Product dose omission issue [Unknown]
